FAERS Safety Report 20811841 (Version 1)
Quarter: 2022Q2

REPORT INFORMATION
  Report Type: Spontaneous
  Country: IT (occurrence: IT)
  Receive Date: 20220511
  Receipt Date: 20220511
  Transmission Date: 20220721
  Serious: Yes (Other)
  Sender: FDA-Public Use
  Company Number: IT-SUN PHARMACEUTICAL INDUSTRIES LTD-2022R1-335712

PATIENT
  Age: 29 Year
  Sex: Female

DRUGS (2)
  1. CLINDAMYCIN [Suspect]
     Active Substance: CLINDAMYCIN
     Indication: Hidradenitis
     Dosage: 600 MILLIGRAM, DAILY
     Route: 065
  2. RIFAMPIN [Suspect]
     Active Substance: RIFAMPIN
     Indication: Hidradenitis
     Dosage: 600 MILLIGRAM, DAILY
     Route: 065

REACTIONS (1)
  - Treatment failure [Unknown]
